FAERS Safety Report 7295165-0 (Version None)
Quarter: 2011Q1

REPORT INFORMATION
  Report Type: 
  Country: None (occurrence: None)
  Receive Date: 20110216
  Receipt Date: 20110210
  Transmission Date: 20110831
  Serious: Yes (Other)
  Sender: FDA-Public Use
  Company Number: US-SANOFI-AVENTIS-2011SA009225

PATIENT
  Age: 50 Year
  Sex: Female

DRUGS (2)
  1. MULTAQ [Suspect]
     Indication: ATRIAL FIBRILLATION
     Route: 065
  2. DABIGATRAN ETEXILATE [Suspect]
     Route: 065

REACTIONS (2)
  - PROTHROMBIN LEVEL ABNORMAL [None]
  - INTERNATIONAL NORMALISED RATIO INCREASED [None]
